FAERS Safety Report 6236821-2 (Version None)
Quarter: 2009Q2

REPORT INFORMATION
  Report Type: 
  Country: None (occurrence: None)
  Receive Date: 20090619
  Receipt Date: 20090608
  Transmission Date: 20091009
  Serious: Yes (Other)
  Sender: FDA-Public Use
  Company Number: PHHY2009DE03685

PATIENT
  Sex: Female

DRUGS (2)
  1. FEMARA [Suspect]
     Indication: BREAST CANCER
     Dosage: 2.5 MG EVERY OTHER DAY
     Route: 048
     Dates: start: 20070201
  2. HERCEPTIN [Concomitant]
     Indication: BREAST CANCER
     Dosage: UNK
     Dates: start: 20070101, end: 20080101

REACTIONS (9)
  - ARTHRALGIA [None]
  - BILIARY TRACT DISORDER [None]
  - BILIARY TRACT OPERATION [None]
  - BONE PAIN [None]
  - CHOLECYSTECTOMY [None]
  - ENDOSCOPIC RETROGRADE CHOLANGIOPANCREATOGRAPHY [None]
  - GALLBLADDER DISORDER [None]
  - HYPERCHOLESTEROLAEMIA [None]
  - LAPAROSCOPY [None]
